FAERS Safety Report 19013368 (Version 1)
Quarter: 2021Q1

REPORT INFORMATION
  Report Type: Spontaneous
  Country: US (occurrence: US)
  Receive Date: 20210316
  Receipt Date: 20210316
  Transmission Date: 20210420
  Serious: Yes (Hospitalization)
  Sender: FDA-Public Use
  Company Number: None

PATIENT
  Age: 62 Year
  Sex: Male
  Weight: 79.2 kg

DRUGS (10)
  1. IMODIUM A?D 15ML TID [Concomitant]
  2. POTASSIUM CL 20 MEQ QD [Concomitant]
  3. CAPECITABINE. [Suspect]
     Active Substance: CAPECITABINE
     Indication: HEPATIC CANCER
     Dosage: OTHER FREQUENCY:BID X14DYS Q 21DYS;?
     Route: 048
     Dates: start: 20201221, end: 20210126
  4. NORVASC 10MG QAM [Concomitant]
  5. VIT D3 2,000 IU QD [Concomitant]
  6. COMPAZINE 10MG PRN [Concomitant]
  7. CAPECITABINE. [Suspect]
     Active Substance: CAPECITABINE
     Indication: COLON CANCER
     Dosage: OTHER FREQUENCY:BID X14DYS Q 21DYS;?
     Route: 048
     Dates: start: 20201221, end: 20210126
  8. MAG OX 400MG QD [Concomitant]
  9. ZOFRAN 4MG PRN [Concomitant]
  10. BENICAR 40MG QD PRN [Concomitant]

REACTIONS (3)
  - Gastrointestinal toxicity [None]
  - Sepsis [None]
  - Palmar-plantar erythrodysaesthesia syndrome [None]

NARRATIVE: CASE EVENT DATE: 20210129
